FAERS Safety Report 7321739-4 (Version None)
Quarter: 2011Q1

REPORT INFORMATION
  Report Type: 
  Country: None (occurrence: None)
  Receive Date: 20110228
  Receipt Date: 20110222
  Transmission Date: 20110831
  Serious: Yes (Other)
  Sender: FDA-Public Use
  Company Number: CHPA2011US03138

PATIENT
  Age: 72 Year
  Sex: Female

DRUGS (3)
  1. TRANSDERM SCOP [Suspect]
     Indication: MOTION SICKNESS
     Dosage: 1 PATCH FOR A DURATION OF 12-24 HOURS PRN
     Route: 062
     Dates: start: 20040101
  2. TRANSDERM SCOP [Suspect]
     Dosage: 1 PATCH FOR A DURATION OF 12-24 HOURS PRN
     Route: 062
     Dates: start: 20070101
  3. TRANSDERM SCOP [Suspect]
     Dosage: 1 PATCH FOR A DURATION OF 12-24 HOURS PRN
     Route: 062
     Dates: start: 20090101

REACTIONS (4)
  - OROPHARYNGEAL PAIN [None]
  - DRY MOUTH [None]
  - REBOUND EFFECT [None]
  - CATARACT OPERATION [None]
